FAERS Safety Report 6729202-6 (Version None)
Quarter: 2010Q2

REPORT INFORMATION
  Report Type: 
  Country: None (occurrence: None)
  Receive Date: 20100517
  Receipt Date: 20100414
  Transmission Date: 20101027
  Serious: No
  Sender: FDA-Public Use
  Company Number: US-ABBOTT-10P-163-0638532-00

PATIENT
  Sex: Male
  Weight: 108.96 kg

DRUGS (2)
  1. SIMCOR [Suspect]
     Indication: BLOOD CHOLESTEROL INCREASED
     Dosage: 500 MG/20 MG DAILY
     Dates: start: 20100101
  2. UNKNOWN MEDICATION [Concomitant]
     Indication: PERIPHERAL ARTERIAL OCCLUSIVE DISEASE

REACTIONS (2)
  - FLUSHING [None]
  - PRURITUS [None]
